FAERS Safety Report 6849109-3 (Version None)
Quarter: 2010Q3

REPORT INFORMATION
  Report Type: 
  Country: None (occurrence: None)
  Receive Date: 20100716
  Receipt Date: 20070926
  Transmission Date: 20110219
  Serious: No
  Sender: FDA-Public Use
  Company Number: US-PFIZER INC-2007081864

PATIENT
  Sex: Female
  Weight: 72.7 kg

DRUGS (5)
  1. CHANTIX [Suspect]
     Indication: SMOKING CESSATION THERAPY
     Dosage: 4
     Dates: start: 20070829
  2. LIPITOR [Concomitant]
  3. AMBIEN [Concomitant]
  4. ESTRADIOL [Concomitant]
  5. ACETYLSALICYLIC ACID [Concomitant]

REACTIONS (1)
  - SLEEP DISORDER [None]
